FAERS Safety Report 12273068 (Version 1)
Quarter: 2016Q2

REPORT INFORMATION
  Report Type: Spontaneous
  Country: US (occurrence: US)
  Receive Date: 20160415
  Receipt Date: 20160415
  Transmission Date: 20160815
  Serious: No
  Sender: FDA-Public Use
  Company Number: US-ROCHE-1427243

PATIENT
  Sex: Female

DRUGS (4)
  1. EFFEXOR XR [Concomitant]
     Active Substance: VENLAFAXINE HYDROCHLORIDE
     Route: 065
  2. PEGASYS [Suspect]
     Active Substance: PEGINTERFERON ALFA-2A
     Indication: CHRONIC HEPATITIS C
     Route: 058
     Dates: start: 20140612
  3. SOVALDI [Suspect]
     Active Substance: SOFOSBUVIR
     Indication: CHRONIC HEPATITIS C
     Route: 065
     Dates: start: 20140612
  4. RIBAVIRIN. [Suspect]
     Active Substance: RIBAVIRIN
     Indication: CHRONIC HEPATITIS C
     Dosage: DIVIDED DOSES 400/600
     Route: 048
     Dates: start: 20140612

REACTIONS (14)
  - Vomiting [Unknown]
  - Headache [Recovered/Resolved]
  - Chest pain [Recovered/Resolved]
  - Pyrexia [Unknown]
  - Mood swings [Unknown]
  - Anger [Unknown]
  - Poor quality sleep [Unknown]
  - Nausea [Unknown]
  - Night sweats [Unknown]
  - Productive cough [Unknown]
  - Diarrhoea [Unknown]
  - Irritability [Unknown]
  - Fatigue [Unknown]
  - Rhinorrhoea [Unknown]
